FAERS Safety Report 16831845 (Version 2)
Quarter: 2019Q3

REPORT INFORMATION
  Report Type: Spontaneous
  Country: US (occurrence: US)
  Receive Date: 20190920
  Receipt Date: 20190930
  Transmission Date: 20191005
  Serious: Yes (Hospitalization)
  Sender: FDA-Public Use
  Company Number: US-KARYOPHARM THERAPEUTICS, INC.-2019KPT000403

PATIENT

DRUGS (1)
  1. XPOVIO [Suspect]
     Active Substance: SELINEXOR
     Indication: PLASMA CELL MYELOMA
     Dosage: 80 MG, 2X/WEEK
     Route: 048
     Dates: start: 20190806, end: 20190911

REACTIONS (8)
  - Arthralgia [Unknown]
  - Muscle spasms [Unknown]
  - Thrombocytopenia [Unknown]
  - Abdominal pain upper [Unknown]
  - Nausea [Unknown]
  - Dizziness [Unknown]
  - Hypotension [Unknown]
  - Loss of consciousness [Unknown]

NARRATIVE: CASE EVENT DATE: 20190809
